FAERS Safety Report 6142245-9 (Version None)
Quarter: 2009Q2

REPORT INFORMATION
  Report Type: 
  Country: None (occurrence: None)
  Receive Date: 20090403
  Receipt Date: 20071130
  Transmission Date: 20091009
  Serious: Yes (Death, Hospitalization, Other)
  Sender: FDA-Public Use
  Company Number: US-ASTRAZENECA-2006UW11387

PATIENT
  Age: 68 Year
  Sex: Female
  Weight: 63.6 kg

DRUGS (23)
  1. SEROQUEL [Suspect]
     Route: 048
     Dates: start: 20010101, end: 20060101
  2. SEROQUEL [Suspect]
     Dosage: 25 TO 200 MG
     Route: 048
     Dates: start: 20010724
  3. RISPERDAL [Suspect]
  4. ZYPREXA [Suspect]
  5. LORAZEPAM [Concomitant]
  6. ASCORBIC ACID [Concomitant]
  7. MEGESTROL ACETATE [Concomitant]
  8. MAXZIDE [Concomitant]
  9. REMINYL [Concomitant]
  10. EXELON [Concomitant]
  11. DURAGESIC-100 [Concomitant]
  12. CELEXA [Concomitant]
  13. METOPROLOL [Concomitant]
  14. POTASSIUM CL [Concomitant]
  15. PLETAL [Concomitant]
  16. ASPIRIN [Concomitant]
  17. FOLIC ACID [Concomitant]
  18. TRIAMTERENE [Concomitant]
  19. CLOTRIMAZOLE [Concomitant]
  20. LANTUS [Concomitant]
  21. OXYCODONE HCL [Concomitant]
  22. RIFAMPICIN [Concomitant]
  23. COLCHICINE [Concomitant]

REACTIONS (38)
  - AGITATION [None]
  - ARTERIOSCLEROSIS [None]
  - ASPIRATION [None]
  - BRONCHITIS CHRONIC [None]
  - CELLULITIS [None]
  - CHEST PAIN [None]
  - CORONARY ARTERY DISEASE [None]
  - DEHYDRATION [None]
  - DEPRESSION [None]
  - DIABETES INSIPIDUS [None]
  - DIABETES MELLITUS [None]
  - DYSPEPSIA [None]
  - FALL [None]
  - GANGRENE [None]
  - GASTROINTESTINAL HAEMORRHAGE [None]
  - HAEMATEMESIS [None]
  - HYPERNATRAEMIA [None]
  - HYPOVOLAEMIA [None]
  - MENTAL STATUS CHANGES [None]
  - MONARTHRITIS [None]
  - NAUSEA [None]
  - OEDEMA PERIPHERAL [None]
  - OSTEOARTHRITIS [None]
  - PAIN [None]
  - PAIN IN EXTREMITY [None]
  - PNEUMONIA [None]
  - PYELONEPHRITIS [None]
  - PYREXIA [None]
  - RENAL FAILURE ACUTE [None]
  - SEIZURE ANOXIC [None]
  - SEPSIS [None]
  - SUDDEN DEATH [None]
  - TOOTHACHE [None]
  - URINARY TRACT INFECTION BACTERIAL [None]
  - UROSEPSIS [None]
  - VITAMIN K DEFICIENCY [None]
  - VOMITING [None]
  - VULVOVAGINAL CANDIDIASIS [None]
